FAERS Safety Report 5218806-8 (Version None)
Quarter: 2007Q1

REPORT INFORMATION
  Report Type: 
  Country: None (occurrence: None)
  Receive Date: 20070125
  Receipt Date: 20070117
  Transmission Date: 20070707
  Serious: Yes (Hospitalization)
  Sender: FDA-Public Use
  Company Number: JP-SP-2007-00145

PATIENT
  Sex: Female

DRUGS (1)
  1. IMMUCYST [Suspect]
     Indication: BLADDER CANCER
     Route: 065
     Dates: start: 20061101, end: 20070107

REACTIONS (1)
  - REITER'S SYNDROME [None]
